FAERS Safety Report 22536998 (Version 2)
Quarter: 2023Q2

REPORT INFORMATION
  Report Type: Spontaneous
  Country: US (occurrence: US)
  Receive Date: 20230608
  Receipt Date: 20230622
  Transmission Date: 20230721
  Serious: Yes (Other)
  Sender: FDA-Public Use
  Company Number: US-TEVA-2023-US-2893232

PATIENT
  Age: 45 Year
  Sex: Female

DRUGS (8)
  1. BUPRENORPHINE [Suspect]
     Active Substance: BUPRENORPHINE
     Indication: Back pain
     Dosage: 2-2.5 PILLS A DAY
     Route: 065
  2. GABAPENTIN [Suspect]
     Active Substance: GABAPENTIN
     Indication: Back pain
     Dosage: 600MG IN THE MORNING AND 1200MG IN THE EVENING
     Route: 065
     Dates: start: 2010
  3. TRAZODONE [Suspect]
     Active Substance: TRAZODONE HYDROCHLORIDE
     Indication: Insomnia
     Route: 065
  4. HYDROXYZINE [Suspect]
     Active Substance: HYDROXYZINE HYDROCHLORIDE
     Indication: Insomnia
     Route: 065
  5. BUPROPION [Suspect]
     Active Substance: BUPROPION
     Indication: Major depression
     Dosage: 300 MILLIGRAM DAILY; 3 TIMES A DAY
     Route: 065
     Dates: start: 2008, end: 202010
  6. BUPROPION [Suspect]
     Active Substance: BUPROPION
     Indication: Nicotine dependence
     Dosage: 450 MILLIGRAM DAILY;
     Route: 065
     Dates: start: 202010
  7. BUPROPION [Suspect]
     Active Substance: BUPROPION
     Indication: Parasomnia
  8. HYDROCODONE [Suspect]
     Active Substance: HYDROCODONE
     Indication: Back pain
     Dosage: 40 MILLIGRAM DAILY; 4 TIMES A DAY
     Route: 065
     Dates: start: 2002, end: 2016

REACTIONS (3)
  - Restless legs syndrome [Unknown]
  - Symptom masked [Unknown]
  - Drug ineffective [Unknown]
